FAERS Safety Report 10725562 (Version 3)
Quarter: 2015Q1

REPORT INFORMATION
  Report Type: Spontaneous
  Country: CA (occurrence: CA)
  Receive Date: 20150121
  Receipt Date: 20150310
  Transmission Date: 20150721
  Serious: Yes (Other)
  Sender: FDA-Public Use
  Company Number: CA-ROCHE-1522140

PATIENT
  Age: 65 Year
  Sex: Male

DRUGS (5)
  1. HYDROCHLOROTHIAZIDE. [Concomitant]
     Active Substance: HYDROCHLOROTHIAZIDE
  2. CELLCEPT [Suspect]
     Active Substance: MYCOPHENOLATE MOFETIL\MYCOPHENOLATE MOFETIL HYDROCHLORIDE
     Indication: PEMPHIGOID
     Dosage: UNKNOWN DOSE AND FREQUENCY
     Route: 065
  3. ALTACE [Concomitant]
     Active Substance: RAMIPRIL
  4. CLOBETASOL [Concomitant]
     Active Substance: CLOBETASOL
  5. ALLOPURINOL. [Concomitant]
     Active Substance: ALLOPURINOL

REACTIONS (10)
  - Extremity necrosis [Not Recovered/Not Resolved]
  - Lower respiratory tract infection [Recovered/Resolved]
  - Diabetic ulcer [Unknown]
  - Infected skin ulcer [Unknown]
  - Pemphigoid [Unknown]
  - Drug ineffective [Unknown]
  - Hyperkeratosis [Unknown]
  - Skin ulcer [Not Recovered/Not Resolved]
  - Limb injury [Unknown]
  - Off label use [Unknown]

NARRATIVE: CASE EVENT DATE: 2014
